FAERS Safety Report 25601210 (Version 1)
Quarter: 2025Q3

REPORT INFORMATION
  Report Type: Spontaneous
  Country: CA (occurrence: None)
  Receive Date: 20250724
  Receipt Date: 20250724
  Transmission Date: 20251020
  Serious: Yes (Hospitalization)
  Sender: ORION
  Company Number: CA-PFIZER INC-202500147285

PATIENT
  Age: 62 Year
  Sex: Female

DRUGS (4)
  1. METHOTREXATE [Suspect]
     Active Substance: METHOTREXATE
     Indication: Product used for unknown indication
  2. ABRILADA [Concomitant]
     Active Substance: ADALIMUMAB-AFZB
     Indication: Crohn^s disease
     Dates: start: 20250306
  3. PREDNISONE [Concomitant]
     Active Substance: PREDNISONE
  4. PENTASA [Concomitant]
     Active Substance: MESALAMINE

REACTIONS (3)
  - Cellulitis [Unknown]
  - Fistula [Unknown]
  - Drug ineffective [Unknown]
